FAERS Safety Report 24297571 (Version 1)
Quarter: 2024Q3

REPORT INFORMATION
  Report Type: Spontaneous
  Country: GB (occurrence: GB)
  Receive Date: 20240909
  Receipt Date: 20240909
  Transmission Date: 20241016
  Serious: Yes (Hospitalization, Other)
  Sender: TEVA
  Company Number: None

PATIENT
  Age: 78 Year
  Sex: Male

DRUGS (14)
  1. ALENDRONIC ACID [Suspect]
     Active Substance: ALENDRONIC ACID
     Indication: Product used for unknown indication
     Dosage: 2024-08-07?ON THE SAME DAY EACH WEEK -SATURDAY
     Route: 065
  2. ATORVASTATIN [Concomitant]
     Active Substance: ATORVASTATIN
     Indication: Product used for unknown indication
     Dosage: 2024-08-07?80 MG TABLETS ONE TO BE TAKEN AT BEDTIME
     Route: 065
  3. Nutrizym [Concomitant]
     Indication: Product used for unknown indication
     Dosage: 07-AUG-2024?GASTRO-RESISTANT CAPSULES THREE CAPSULES WITH SNACKS AND FOUR-SIX WITH MEALS - PT SAY...
     Route: 065
  4. CALCIUM CARBONATE\CHOLECALCIFEROL [Concomitant]
     Active Substance: CALCIUM CARBONATE\CHOLECALCIFEROL
     Indication: Product used for unknown indication
     Dosage: 2024-08-07?750 MG / 200 UNIT CAPLETS 2 TWICE A DAY
     Route: 065
  5. MIRTAZAPINE [Concomitant]
     Active Substance: MIRTAZAPINE
     Indication: Product used for unknown indication
     Dosage: 2024-06-27?15 MG TABLETS ONE TO BE TAKEN AT NIGHT. 28 TABLET
     Route: 065
  6. ACETAMINOPHEN [Concomitant]
     Active Substance: ACETAMINOPHEN
     Indication: Product used for unknown indication
     Dosage: 2024-08-07?500 MG TABLETS ONE OR TWO TO BE TAKEN FOUR TIMES DAILY AS?REQUIRED
     Route: 065
  7. ISOSORBIDE MONONITRATE [Concomitant]
     Active Substance: ISOSORBIDE MONONITRATE
     Indication: Product used for unknown indication
     Dosage: 2024-08-07?60 MG TABLETS ONE TO BE TAKEN EACH MORNING
     Route: 065
  8. ASPIRIN [Concomitant]
     Active Substance: ASPIRIN
     Indication: Product used for unknown indication
     Dosage: 07-AUG-2024?75 MG DISPERSIBLE TABLETS ONE TO BE TAKEN EACH DAY IN THE MORNING
     Route: 065
  9. CIPROFLOXACIN [Concomitant]
     Active Substance: CIPROFLOXACIN
     Indication: Product used for unknown indication
     Dosage: **250 MG TABLETS ONE TO BE TAKEN TWICE A DAY (TOTAL 750 MG BD) - STILL TAKING, WAS STEPPED DOWN T...
     Route: 065
  10. BUTYLSCOPOLAMINE BROMIDE [Concomitant]
     Active Substance: BUTYLSCOPOLAMINE BROMIDE
     Indication: Abdominal pain
     Dosage: 2024-07-09?10 MG TABLETS TWO TO BE TAKEN FOUR TIMES A DAY AS REQUIRED FOR ABDOMINAL PAIN
     Route: 065
  11. HYPROMELLOSES [Concomitant]
     Active Substance: HYPROMELLOSES
     Indication: Product used for unknown indication
     Dosage: TIME INTERVAL: 0.33333333 DAYS: 2024-07-09?0.3% EYE DROPS 1-2 DROPS THREE TIMES A DAY AS REQUIRED...
     Route: 065
  12. CLOBETASONE [Concomitant]
     Active Substance: CLOBETASONE
     Indication: Product used for unknown indication
     Dosage: 2024-07-11?**0.05% CREAM APPLY TWICE DAILY 30 GRAM - STILL USING, SAID IS RUNNING OUT AS OOS AT C...
     Route: 065
  13. MORPHINE SULFATE [Concomitant]
     Active Substance: MORPHINE SULFATE
     Indication: Product used for unknown indication
     Dosage: TIME INTERVAL: AS NECESSARY: 2024-08-07?10 MG / 5 ML ORAL SOLUTION 2.5 MLS TO 5 MLS PRN - PT USES...
     Route: 048
  14. DICLOFENAC [Concomitant]
     Active Substance: DICLOFENAC
     Indication: Product used for unknown indication
     Dosage: 21-MAY-2024?DICLOFENAC DIETHYLAMMONIUM?**1.16% GEL APPLY THREE OR FOUR TIMES A DAY FOR 2 WEEKS 10...
     Route: 065

REACTIONS (1)
  - Otitis externa [Unknown]
